FAERS Safety Report 7689801-4 (Version None)
Quarter: 2011Q3

REPORT INFORMATION
  Report Type: 
  Country: None (occurrence: None)
  Receive Date: 20110818
  Receipt Date: 20110816
  Transmission Date: 20111222
  Serious: Yes (Hospitalization)
  Sender: FDA-Public Use
  Company Number: US-BRISTOL-MYERS SQUIBB COMPANY-15973910

PATIENT
  Age: 73 Year
  Sex: Female

DRUGS (1)
  1. ERBITUX [Suspect]
     Indication: COLON CANCER
     Dosage: ERBITX INF 200MG:2VIALS,LOT NO 10C00203A /EXP DT-JUL13/ERBIX 100MG:1VIAL:LOT NO 10C00013 /EXP JUL13
     Dates: start: 20110705

REACTIONS (1)
  - BLOOD GLUCOSE INCREASED [None]
